FAERS Safety Report 7489899-2 (Version None)
Quarter: 2011Q2

REPORT INFORMATION
  Report Type: 
  Country: None (occurrence: None)
  Receive Date: 20110512
  Receipt Date: 20110429
  Transmission Date: 20111010
  Serious: Yes (Hospitalization)
  Sender: FDA-Public Use
  Company Number: 1000019827

PATIENT
  Age: 83 Year
  Sex: Female
  Weight: 75 kg

DRUGS (8)
  1. MEMANTINE [Suspect]
     Indication: DEMENTIA ALZHEIMER'S TYPE
     Dosage: SEE IMAGE
     Route: 048
     Dates: start: 20100420, end: 20100426
  2. MEMANTINE [Suspect]
     Indication: DEMENTIA ALZHEIMER'S TYPE
     Dosage: SEE IMAGE
     Route: 048
     Dates: start: 20100413, end: 20100419
  3. MEMANTINE [Suspect]
     Indication: DEMENTIA ALZHEIMER'S TYPE
     Dosage: SEE IMAGE
     Route: 048
     Dates: start: 20100504, end: 20100802
  4. MEMANTINE [Suspect]
     Indication: DEMENTIA ALZHEIMER'S TYPE
     Dosage: SEE IMAGE
     Route: 048
     Dates: start: 20100427, end: 20100503
  5. OMEP (OMEPRAZOLE) (OMEPRAZOLE) [Concomitant]
  6. METOPROLOL SUCCINATE [Concomitant]
  7. ASS (ACETYLSALICYLIC ACID) (ACETYLSALICYLIC ACID) [Concomitant]
  8. NORVASC [Concomitant]

REACTIONS (12)
  - DISTURBANCE IN ATTENTION [None]
  - SPEECH DISORDER [None]
  - MEMORY IMPAIRMENT [None]
  - ALANINE AMINOTRANSFERASE INCREASED [None]
  - AGGRESSION [None]
  - PSYCHOMOTOR RETARDATION [None]
  - BRADYPHRENIA [None]
  - ASPARTATE AMINOTRANSFERASE INCREASED [None]
  - RED CELL DISTRIBUTION WIDTH INCREASED [None]
  - BLOOD GLUCOSE INCREASED [None]
  - MENTAL IMPAIRMENT [None]
  - ILLUSION [None]
